FAERS Safety Report 12060234 (Version 1)
Quarter: 2016Q1

REPORT INFORMATION
  Report Type: Spontaneous
  Country: US (occurrence: US)
  Receive Date: 20160210
  Receipt Date: 20160210
  Transmission Date: 20160526
  Serious: Yes (Life-Threatening)
  Sender: FDA-Public Use
  Company Number: US-STANDARD HOMEOPATHIC COMPANY-1047587

PATIENT
  Age: 18 Month
  Sex: Female

DRUGS (1)
  1. HYLANDS BABY COUGH SYRUP [Suspect]
     Active Substance: HOMEOPATHICS
     Indication: COUGH
     Route: 048

REACTIONS (4)
  - Vomiting [None]
  - Seizure [Unknown]
  - Pallor [None]
  - Unresponsive to stimuli [None]

NARRATIVE: CASE EVENT DATE: 20160126
